FAERS Safety Report 7357711-8 (Version None)
Quarter: 2011Q1

REPORT INFORMATION
  Report Type: 
  Country: None (occurrence: None)
  Receive Date: 20110317
  Receipt Date: 20110307
  Transmission Date: 20110831
  Serious: Yes (Other)
  Sender: FDA-Public Use
  Company Number: US-MYLANLABS-2011S1001326

PATIENT
  Age: 15 Year
  Sex: Female
  Weight: 63.05 kg

DRUGS (1)
  1. AMNESTEEM [Suspect]
     Indication: ACNE
     Route: 048
     Dates: start: 20101215, end: 20110101

REACTIONS (3)
  - INTENTIONAL SELF-INJURY [None]
  - DEPRESSION [None]
  - PERSONALITY CHANGE [None]
